FAERS Safety Report 24291366 (Version 1)
Quarter: 2024Q3

REPORT INFORMATION
  Report Type: Spontaneous
  Country: US (occurrence: None)
  Receive Date: 20240906
  Receipt Date: 20240906
  Transmission Date: 20241016
  Serious: No
  Sender: DOMPE FARMACEUTICI
  Company Number: US-FARMAPROD-202308-2480

PATIENT
  Age: 89 Year
  Sex: Female

DRUGS (21)
  1. OXERVATE [Suspect]
     Active Substance: CENEGERMIN-BKBJ
     Indication: Neurotrophic keratopathy
     Route: 047
     Dates: start: 20230814
  2. OXERVATE [Suspect]
     Active Substance: CENEGERMIN-BKBJ
  3. OXERVATE [Suspect]
     Active Substance: CENEGERMIN-BKBJ
  4. OXERVATE [Suspect]
     Active Substance: CENEGERMIN-BKBJ
  5. TRAMADOL HCL [Concomitant]
     Active Substance: TRAMADOL HYDROCHLORIDE
  6. TROSPIUM CHLORIDE [Concomitant]
     Active Substance: TROSPIUM CHLORIDE
  7. SULINDAC [Concomitant]
     Active Substance: SULINDAC
  8. TORSEMIDE [Concomitant]
     Active Substance: TORSEMIDE
  9. METOPROLOL TARTRATE [Concomitant]
     Active Substance: METOPROLOL TARTRATE
  10. ALLOPURINOL [Concomitant]
     Active Substance: ALLOPURINOL
  11. SIMVASTATIN [Concomitant]
     Active Substance: SIMVASTATIN
  12. LEVOTHYROXINE SODIUM [Concomitant]
     Active Substance: LEVOTHYROXINE SODIUM
  13. VITAMIN D3 [Concomitant]
     Active Substance: CHOLECALCIFEROL
  14. VITAMIN B-12 ACTIVE [Concomitant]
  15. VITAMINS [Concomitant]
     Active Substance: VITAMINS
  16. DICLOFENAC SODIUM [Concomitant]
     Active Substance: DICLOFENAC\DICLOFENAC SODIUM
  17. LISINOPRIL [Concomitant]
     Active Substance: LISINOPRIL
  18. FUROSEMIDE [Concomitant]
     Active Substance: FUROSEMIDE
  19. FAMOTIDINE [Concomitant]
     Active Substance: FAMOTIDINE
  20. CBD OIL AND GUMMIES [Concomitant]
  21. XANTHOMYST [Concomitant]

REACTIONS (11)
  - Wrong technique in product usage process [Unknown]
  - Eye pain [Recovering/Resolving]
  - Periorbital swelling [Unknown]
  - Weight decreased [Unknown]
  - Urinary tract infection [Unknown]
  - Product dose omission issue [Unknown]
  - Eyelid pain [Not Recovered/Not Resolved]
  - Dry eye [Unknown]
  - Foreign body sensation in eyes [Unknown]
  - Ocular hyperaemia [Unknown]
  - Eye swelling [Unknown]

NARRATIVE: CASE EVENT DATE: 20230815
